FAERS Safety Report 4870642-8 (Version None)
Quarter: 2005Q4

REPORT INFORMATION
  Report Type: 
  Country: None (occurrence: None)
  Receive Date: 20051228
  Receipt Date: 20050930
  Transmission Date: 20060501
  Serious: Yes (Hospitalization)
  Sender: FDA-Public Use
  Company Number: 2005VX000556

PATIENT
  Age: 68 Year
  Sex: Male

DRUGS (5)
  1. LIBRAX [Suspect]
     Indication: IRRITABLE BOWEL SYNDROME
     Dosage: SEE IMAGE
  2. LORAZEPAM [Concomitant]
  3. PERPHENAZINE [Concomitant]
  4. AMITRIPTYLINE HCL [Concomitant]
  5. HYDROCHLORIDE [Concomitant]

REACTIONS (2)
  - IMMUNE SYSTEM DISORDER [None]
  - THROMBOCYTOPENIC PURPURA [None]
